FAERS Safety Report 11248176 (Version 2)
Quarter: 2015Q2

REPORT INFORMATION
  Report Type: Report from Study
  Country: US (occurrence: None)
  Receive Date: 20150617
  Receipt Date: 20150617
  Transmission Date: 20150821
  Serious: No
  Sender: FDA-Public Use
  Company Number: 2014TASUS000517

PATIENT
  Age: 63 Year
  Sex: Female
  Weight: 79.8 kg

DRUGS (10)
  1. VESICARE [Concomitant]
     Active Substance: SOLIFENACIN SUCCINATE
  2. ACTONEL (RISEDRONATE SODIUM) [Concomitant]
  3. VITAMINS NOS [Concomitant]
     Active Substance: VITAMINS
  4. MELOXICAM. [Concomitant]
     Active Substance: MELOXICAM
  5. ALLEGRA-D (FEXOFENADINE HYDROCHLORIDE, PSEUDOEPHEDRINE HYDROCHLORIDE) [Concomitant]
  6. HETLIOZ [Suspect]
     Active Substance: TASIMELTEON
     Indication: CIRCADIAN RHYTHM SLEEP DISORDER
     Route: 048
     Dates: start: 20140821
  7. ACCOLATE (ZAFIRLUKAST) [Concomitant]
  8. EXFORGE (AMLODIPINE BESILATE, VALSARTAN) [Concomitant]
  9. LANSOPRAZOLE. [Concomitant]
     Active Substance: LANSOPRAZOLE
  10. SIMVASTATIN. [Concomitant]
     Active Substance: SIMVASTATIN

REACTIONS (4)
  - Asthenia [None]
  - Drug ineffective [None]
  - Somnolence [None]
  - Malaise [None]

NARRATIVE: CASE EVENT DATE: 2014
